FAERS Safety Report 9107641 (Version 1)
Quarter: 2013Q1

REPORT INFORMATION
  Report Type: Spontaneous
  Country: FR (occurrence: FR)
  Receive Date: 20130222
  Receipt Date: 20130222
  Transmission Date: 20140127
  Serious: Yes (Other)
  Sender: FDA-Public Use
  Company Number: FR-UCBSA-059324

PATIENT
  Age: 25 Year
  Sex: Female
  Weight: 77 kg

DRUGS (3)
  1. VIMPAT [Suspect]
     Indication: EPILEPSY
     Route: 048
     Dates: start: 2010
  2. VIMPAT [Suspect]
     Indication: EPILEPSY
     Dosage: MONOTHERAPY
     Route: 048
  3. FOLIC ACID [Concomitant]
     Route: 048
     Dates: start: 201201

REACTIONS (2)
  - Breech presentation [Recovered/Resolved]
  - Exposure during pregnancy [Recovered/Resolved]
